FAERS Safety Report 6626521-9 (Version None)
Quarter: 2010Q1

REPORT INFORMATION
  Report Type: 
  Country: None (occurrence: None)
  Receive Date: 20100310
  Receipt Date: 20100224
  Transmission Date: 20100710
  Serious: Yes (Death)
  Sender: FDA-Public Use
  Company Number: DE-ELI_LILLY_AND_COMPANY-DE201002006800

PATIENT
  Sex: Male
  Weight: 75 kg

DRUGS (1)
  1. EFFIENT [Suspect]
     Dosage: 10 MG, UNKNOWN
     Route: 048

REACTIONS (1)
  - SUDDEN CARDIAC DEATH [None]
